FAERS Safety Report 7153231-4 (Version None)
Quarter: 2010Q4

REPORT INFORMATION
  Report Type: 
  Country: None (occurrence: None)
  Receive Date: 20101213
  Receipt Date: 20101202
  Transmission Date: 20110411
  Serious: Yes (Other)
  Sender: FDA-Public Use
  Company Number: US-ROCHE-724562

PATIENT
  Sex: Male
  Weight: 108.9 kg

DRUGS (1)
  1. ACCUTANE [Suspect]
     Indication: PSORIASIS
     Route: 065
     Dates: start: 20011120, end: 20020601

REACTIONS (2)
  - COLITIS ULCERATIVE [None]
  - PSORIATIC ARTHROPATHY [None]
